FAERS Safety Report 6870160-1 (Version None)
Quarter: 2010Q3

REPORT INFORMATION
  Report Type: 
  Country: None (occurrence: None)
  Receive Date: 20100712
  Receipt Date: 20100623
  Transmission Date: 20110219
  Serious: Yes (Other)
  Sender: FDA-Public Use
  Company Number: 20100618CINRY1521

PATIENT
  Age: 49 Year
  Sex: Female

DRUGS (15)
  1. CINRYZE [Suspect]
     Indication: HEREDITARY ANGIOEDEMA
     Dosage: 1000 UNIT, 2 IN 1 WK, 1000 UNIT, 1 IN 3 D, INTRAVENOUS
     Route: 042
     Dates: start: 20100422, end: 20100501
  2. CINRYZE [Suspect]
     Indication: PROPHYLAXIS
     Dosage: 1000 UNIT, 2 IN 1 WK, 1000 UNIT, 1 IN 3 D, INTRAVENOUS
     Route: 042
     Dates: start: 20100422, end: 20100501
  3. CELEBREX [Concomitant]
  4. CYMBALTA [Concomitant]
  5. ATENOLOL [Concomitant]
  6. AMLODIPINEI (AMLODIPINE) [Concomitant]
  7. METFORMIN HCL [Concomitant]
  8. BUMETANIDE [Concomitant]
  9. POTASSIUM (POTASSIUM) [Concomitant]
  10. ZOLOFT [Concomitant]
  11. NEXIUM [Concomitant]
  12. ALPRAZOLAM [Concomitant]
  13. CETIRIZINE HCL [Concomitant]
  14. DICYCLOMINE [Concomitant]
  15. HYDROCODONE BITARTRATE [Concomitant]

REACTIONS (7)
  - ALANINE AMINOTRANSFERASE INCREASED [None]
  - ASPARTATE AMINOTRANSFERASE INCREASED [None]
  - BLOOD ALKALINE PHOSPHATASE INCREASED [None]
  - CARDIAC FLUTTER [None]
  - HEADACHE [None]
  - HEREDITARY ANGIOEDEMA [None]
  - PROTEIN TOTAL INCREASED [None]
